FAERS Safety Report 8758126 (Version 2)
Quarter: 2012Q4

REPORT INFORMATION
  Report Type: 
  Country: US (occurrence: US)
  Receive Date: 20120828
  Receipt Date: 20120906
  Transmission Date: 20130627
  Serious: No
  Sender: FDA-Public Use
  Company Number: US-009507513-1208USA009922

PATIENT

DRUGS (4)
  1. ZEGERID OTC [Suspect]
     Indication: ERUCTATION
     Dosage: 20 mg, qd
     Route: 048
     Dates: start: 20120728, end: 20120810
  2. ZEGERID OTC [Suspect]
     Indication: FLATULENCE
  3. ZEGERID OTC [Suspect]
     Indication: MEDICAL OBSERVATION
  4. VITAMINS (UNSPECIFIED) [Concomitant]
     Dosage: UNK, Unknown

REACTIONS (3)
  - Back pain [Recovered/Resolved]
  - Nervousness [Recovered/Resolved]
  - Feeling jittery [Recovered/Resolved]
